FAERS Safety Report 7108465-1 (Version None)
Quarter: 2010Q4

REPORT INFORMATION
  Report Type: 
  Country: None (occurrence: None)
  Receive Date: 20101117
  Receipt Date: 20101108
  Transmission Date: 20110411
  Serious: Yes (Other)
  Sender: FDA-Public Use
  Company Number: BR-GENENTECH-304643

PATIENT
  Sex: Female
  Weight: 53 kg

DRUGS (8)
  1. RITUXIMAB [Suspect]
     Indication: RHEUMATOID ARTHRITIS
     Dosage: 500 MG/ML, Q15D
     Route: 042
     Dates: start: 20091001, end: 20091016
  2. FORMALDEHYDE [Suspect]
     Indication: PRODUCT USED FOR UNKNOWN INDICATION
     Dosage: UNK
     Route: 065
  3. METHOTREXATE [Suspect]
     Indication: PRODUCT USED FOR UNKNOWN INDICATION
     Dosage: 0.8 ML, UNK
     Route: 065
  4. FOLIC ACID [Concomitant]
     Indication: PRODUCT USED FOR UNKNOWN INDICATION
     Dosage: 5 MG, UNK
  5. PREDNISONE [Concomitant]
     Indication: PREMEDICATION
     Dosage: UNK
  6. PREDNISONE [Concomitant]
     Dosage: UNK
     Dates: start: 20091001, end: 20091001
  7. OMEPRAZOLE [Concomitant]
     Indication: PREMEDICATION
     Dosage: UNK
     Dates: start: 20091001, end: 20091001
  8. CALCIUM/VITAMIN D [Concomitant]
     Indication: PRODUCT USED FOR UNKNOWN INDICATION

REACTIONS (25)
  - ALOPECIA [None]
  - ARTHRALGIA [None]
  - ARTHROPATHY [None]
  - BACK PAIN [None]
  - CHRONIC SINUSITIS [None]
  - DEPRESSION [None]
  - DRUG INEFFECTIVE [None]
  - DYSPNOEA [None]
  - FEELING COLD [None]
  - FEELING OF DESPAIR [None]
  - FOOT DEFORMITY [None]
  - HAEMORRHAGE [None]
  - HYPOAESTHESIA [None]
  - IMMUNODEFICIENCY [None]
  - INSOMNIA [None]
  - JOINT RANGE OF MOTION DECREASED [None]
  - MALAISE [None]
  - MUSCULAR WEAKNESS [None]
  - NAUSEA [None]
  - OROPHARYNGEAL PAIN [None]
  - PERIPHERAL PARALYSIS [None]
  - PNEUMONIA [None]
  - SKIN LACERATION [None]
  - UNEVALUABLE EVENT [None]
  - WEIGHT DECREASED [None]
